FAERS Safety Report 25116858 (Version 3)
Quarter: 2025Q2

REPORT INFORMATION
  Report Type: Spontaneous
  Country: IT (occurrence: IT)
  Receive Date: 20250325
  Receipt Date: 20250411
  Transmission Date: 20250717
  Serious: Yes (Disabling)
  Sender: AUROBINDO
  Company Number: IT-MLMSERVICE-20250304-PI436717-00102-1

PATIENT
  Age: 75 Year
  Sex: Male

DRUGS (2)
  1. CITALOPRAM [Suspect]
     Active Substance: CITALOPRAM
     Indication: Mixed anxiety and depressive disorder
     Dosage: 20 MILLIGRAM, ONCE A DAY (LOW DOSES)
     Route: 065
  2. CLONAZEPAM [Concomitant]
     Active Substance: CLONAZEPAM
     Indication: Mixed anxiety and depressive disorder
     Route: 065

REACTIONS (2)
  - Dyskinesia [Recovered/Resolved]
  - Oromandibular dystonia [Recovered/Resolved]
